FAERS Safety Report 4637346-8 (Version None)
Quarter: 2005Q2

REPORT INFORMATION
  Report Type: 
  Country: None (occurrence: None)
  Receive Date: 20050328
  Receipt Date: 20041206
  Transmission Date: 20051028
  Serious: No
  Sender: FDA-Public Use
  Company Number: USA041082522

PATIENT
  Age: 8 Year
  Sex: Male
  Weight: 39 kg

DRUGS (2)
  1. STRATTERA [Suspect]
     Indication: ATTENTION DEFICIT/HYPERACTIVITY DISORDER
     Dosage: 25 MG/2 DAY
     Route: 048
     Dates: start: 20031001
  2. ADDERALL 10 [Concomitant]

REACTIONS (4)
  - ABDOMINAL PAIN [None]
  - DRUG INEFFECTIVE [None]
  - VOMITING [None]
  - WEIGHT INCREASED [None]
